FAERS Safety Report 7579868-6 (Version None)
Quarter: 2011Q2

REPORT INFORMATION
  Report Type: 
  Country: None (occurrence: None)
  Receive Date: 20110525
  Receipt Date: 20110203
  Transmission Date: 20111010
  Serious: No
  Sender: FDA-Public Use
  Company Number: 321496

PATIENT
  Age: 43 Year
  Sex: Male

DRUGS (3)
  1. VICTOZA [Suspect]
     Indication: TYPE 2 DIABETES MELLITUS
     Dosage: SEE IMAGE SUBCUTANEOUS
     Route: 058
     Dates: start: 20101201
  2. VICTOZA [Suspect]
     Indication: TYPE 2 DIABETES MELLITUS
     Dosage: SEE IMAGE SUBCUTANEOUS
     Route: 058
     Dates: start: 20110111, end: 20110111
  3. VICTOZA [Suspect]
     Indication: TYPE 2 DIABETES MELLITUS
     Dosage: SEE IMAGE SUBCUTANEOUS
     Route: 058
     Dates: end: 20110108

REACTIONS (2)
  - ERUCTATION [None]
  - FLATULENCE [None]
